FAERS Safety Report 7991753-4 (Version None)
Quarter: 2011Q4

REPORT INFORMATION
  Report Type: 
  Country: None (occurrence: None)
  Receive Date: 20111219
  Receipt Date: 20111214
  Transmission Date: 20120403
  Serious: Yes (Death)
  Sender: FDA-Public Use
  Company Number: PHHY2011AR109136

PATIENT
  Sex: Female

DRUGS (1)
  1. EXELON [Suspect]
     Indication: DEMENTIA ALZHEIMER'S TYPE
     Dosage: 4.6 MG\24 HRS
     Route: 062
     Dates: start: 20090101

REACTIONS (3)
  - PANCREATIC CARCINOMA [None]
  - RESPIRATORY DISORDER [None]
  - PROCEDURAL COMPLICATION [None]
